FAERS Safety Report 7275584-9 (Version None)
Quarter: 2011Q1

REPORT INFORMATION
  Report Type: 
  Country: None (occurrence: None)
  Receive Date: 20110131
  Receipt Date: 20110120
  Transmission Date: 20110831
  Serious: Yes (Other)
  Sender: FDA-Public Use
  Company Number: 810913

PATIENT
  Age: 67 Year
  Sex: Male

DRUGS (6)
  1. DEXAMETHASONE [Suspect]
     Indication: PRODUCT USED FOR UNKNOWN INDICATION
     Dosage: 8 MG MILLIGRAM(S), INTRAVENOUS (NOT OTHERWISE SPECIFIED)
     Route: 042
     Dates: start: 20080515, end: 20080516
  2. OXALIPLATIN [Suspect]
     Indication: PRODUCT USED FOR UNKNOWN INDICATION
     Dosage: 750 MG MILLIGRAM(S),INTRAVENOUS (NOT OTHERWISE SPECIFIED)
     Route: 042
     Dates: start: 20080515, end: 20080515
  3. (RESCUVOLIN) [Suspect]
     Indication: PRODUCT USED FOR UNKNOWN INDICATION
  4. FLUOROURACIL [Suspect]
     Indication: PRODUCT USED FOR UNKNOWN INDICATION
     Dates: start: 20080515
  5. NEULASTA [Suspect]
     Indication: GASTROINTESTINAL CARCINOMA
     Dosage: 6 MG MILLIGRAM(S) CUTANEOUS
     Route: 003
     Dates: start: 20080512, end: 20080517
  6. (ONDANSETRON) [Concomitant]

REACTIONS (1)
  - PULMONARY EMBOLISM [None]
